FAERS Safety Report 11898202 (Version 1)
Quarter: 2016Q1

REPORT INFORMATION
  Report Type: Spontaneous
  Country: US (occurrence: None)
  Receive Date: 20160107
  Receipt Date: 20160107
  Transmission Date: 20160526
  Serious: Yes (Other)
  Sender: FDA-Public Use
  Company Number: None

PATIENT
  Age: 52 Year
  Sex: Female
  Weight: 57.61 kg

DRUGS (19)
  1. CYANOCOBALAMIN (VIT B-12) [Concomitant]
  2. MAKALT (RISATRIPTAN) [Concomitant]
  3. CALCI-MIX (CALCIUM CARBONATE) [Concomitant]
  4. PREVACID [Concomitant]
     Active Substance: LANSOPRAZOLE
  5. DMEA (PRASTERONE) [Concomitant]
  6. HYDROCHLOROTHIAZIDE. [Concomitant]
     Active Substance: HYDROCHLOROTHIAZIDE
  7. APIXABAN [Suspect]
     Active Substance: APIXABAN
     Indication: THROMBOSIS PROPHYLAXIS
     Route: 048
     Dates: start: 20151015, end: 2015
  8. METOPROLOL SUCCINATE. [Concomitant]
     Active Substance: METOPROLOL SUCCINATE
  9. TOPROL XL [Concomitant]
     Active Substance: METOPROLOL SUCCINATE
  10. SERTRALINE [Concomitant]
     Active Substance: SERTRALINE HYDROCHLORIDE
  11. APIXABAN [Suspect]
     Active Substance: APIXABAN
     Indication: ANTIPHOSPHOLIPID SYNDROME
     Route: 048
     Dates: start: 20151015, end: 2015
  12. ZONEGRAN (ZONISAMIDE) [Concomitant]
  13. CORTEF (HYDROCORTISONE) [Concomitant]
  14. PETADOLEX (BUTTERBUR ROOT EXTRACT) [Concomitant]
  15. PRAMIPEXOLE. [Concomitant]
     Active Substance: PRAMIPEXOLE
  16. KEPPRA XR (LEVETIRACETAM) [Concomitant]
  17. TYLENOL EXTRA STRENGTH (ACETAMINOPHEN) [Concomitant]
  18. POTASSIUM CHLORIDE. [Concomitant]
     Active Substance: POTASSIUM CHLORIDE
  19. ELIQUIS (EINABAN) [Concomitant]

REACTIONS (3)
  - Dizziness [None]
  - Visual field defect [None]
  - Cerebrovascular accident [None]

NARRATIVE: CASE EVENT DATE: 20160105
